FAERS Safety Report 14805877 (Version 1)
Quarter: 2018Q2

REPORT INFORMATION
  Report Type: Spontaneous
  Country: US (occurrence: US)
  Receive Date: 20180425
  Receipt Date: 20180425
  Transmission Date: 20180711
  Serious: No
  Sender: FDA-Public Use
  Company Number: PHEH2018US015143

PATIENT
  Sex: Female

DRUGS (1)
  1. TRIMETHOPRIM/POLYMYXIN B [Suspect]
     Active Substance: POLYMYXIN B SULFATE\TRIMETHOPRIM
     Indication: EYE INFECTION
     Route: 047
     Dates: start: 20180416

REACTIONS (3)
  - Ocular hyperaemia [Unknown]
  - Eyelid oedema [Unknown]
  - Eye pruritus [Unknown]
